FAERS Safety Report 25229235 (Version 1)
Quarter: 2025Q2

REPORT INFORMATION
  Report Type: Spontaneous
  Country: US (occurrence: None)
  Receive Date: 20250422
  Receipt Date: 20250422
  Transmission Date: 20250717
  Serious: Yes (Hospitalization)
  Sender: FDA-CTU
  Company Number: None

PATIENT
  Age: 11 Year
  Sex: Female
  Weight: 38.7 kg

DRUGS (1)
  1. DOJOLVI [Suspect]
     Active Substance: TRIHEPTANOIN
     Indication: Pyruvate carboxylase deficiency
     Dosage: OTHER FREQUENCY : FOUR TIMES A DAY ;?OTHER ROUTE : GASTROSLOMY TUBE;?
     Route: 050
     Dates: start: 20160303

REACTIONS (6)
  - Seizure [None]
  - Vomiting [None]
  - Blood lactic acid increased [None]
  - Blood ketone body increased [None]
  - Metabolic acidosis [None]
  - Dyspnoea [None]

NARRATIVE: CASE EVENT DATE: 20250409
